FAERS Safety Report 9830526 (Version 1)
Quarter: 2014Q1

REPORT INFORMATION
  Report Type: Spontaneous
  Country: JP (occurrence: JP)
  Receive Date: 20140120
  Receipt Date: 20140120
  Transmission Date: 20141002
  Serious: Yes (Life-Threatening)
  Sender: FDA-Public Use
  Company Number: JP-BRISTOL-MYERS SQUIBB COMPANY-20047627

PATIENT
  Age: 74 Year
  Sex: Male
  Weight: 47 kg

DRUGS (4)
  1. ERBITUX SOLN FOR INF 5MG/ML [Suspect]
     Indication: COLORECTAL CANCER
     Dosage: ALSO 360MG
     Route: 041
     Dates: start: 20131121, end: 20140102
  2. IRINOTECAN [Suspect]
     Indication: COLORECTAL CANCER
     Route: 041
     Dates: start: 20131121, end: 20140102
  3. 5-FLUOROURACIL [Suspect]
     Indication: COLORECTAL CANCER
     Dosage: 3460MG:IV DRIP
     Route: 040
     Dates: start: 20131121, end: 20140102
  4. CALCIUM FOLINATE [Concomitant]
     Indication: COLORECTAL CANCER
     Route: 041

REACTIONS (1)
  - Pneumocystis jirovecii pneumonia [Recovering/Resolving]
